FAERS Safety Report 23715602 (Version 2)
Quarter: 2024Q2

REPORT INFORMATION
  Report Type: Spontaneous
  Country: FR (occurrence: FR)
  Receive Date: 20240408
  Receipt Date: 20240417
  Transmission Date: 20240716
  Serious: Yes (Life-Threatening)
  Sender: FDA-Public Use
  Company Number: None

PATIENT
  Age: 63 Year
  Sex: Female

DRUGS (6)
  1. ALIZAPRIDE [Suspect]
     Active Substance: ALIZAPRIDE
     Indication: Chemotherapy side effect prophylaxis
     Dosage: 100.000MG
     Route: 042
     Dates: start: 20231115, end: 20231115
  2. CARBOPLATIN [Suspect]
     Active Substance: CARBOPLATIN
     Indication: Endometrial cancer
     Dosage: 84 MG, ONCE/SINGLE
     Route: 042
     Dates: start: 20231115, end: 20231115
  3. DEXAMETHASONE [Suspect]
     Active Substance: DEXAMETHASONE
     Indication: Chemotherapy side effect prophylaxis
     Dosage: 100 MG, ONCE/SINGLE
     Route: 042
     Dates: start: 20231115, end: 20231115
  4. EMEND [Suspect]
     Active Substance: APREPITANT
     Indication: Prophylaxis of nausea and vomiting
     Dosage: UNK
     Route: 048
     Dates: start: 20231115, end: 20231115
  5. ONDANSETRON [Suspect]
     Active Substance: ONDANSETRON
     Indication: Prophylaxis of nausea and vomiting
     Dosage: 8 MG, ONCE/SINGLE
     Route: 042
     Dates: start: 20231115, end: 20231115
  6. PACLITAXEL [Suspect]
     Active Substance: PACLITAXEL
     Indication: Endometrial cancer
     Dosage: 264 MG, ONCE/SINGLE
     Route: 042
     Dates: start: 20231115, end: 20231115

REACTIONS (1)
  - Anaphylactic shock [Recovered/Resolved]

NARRATIVE: CASE EVENT DATE: 20231115
